FAERS Safety Report 9444756 (Version 2)
Quarter: 2013Q3

REPORT INFORMATION
  Report Type: Spontaneous
  Country: FI (occurrence: FI)
  Receive Date: 20130807
  Receipt Date: 20130902
  Transmission Date: 20140515
  Serious: Yes (Death, Other)
  Sender: FDA-Public Use
  Company Number: FI-ROCHE-1258580

PATIENT
  Sex: Female

DRUGS (16)
  1. AVASTIN [Suspect]
     Indication: OVARIAN CANCER
     Route: 065
     Dates: start: 20101208, end: 20130301
  2. BISOPROLOL [Concomitant]
  3. LINATIL [Concomitant]
  4. CITALOPRAM [Concomitant]
  5. IMOVANE [Concomitant]
  6. VAGIFEM [Concomitant]
  7. PANADOL [Concomitant]
  8. SOMAC (FINLAND) [Concomitant]
  9. ONDANSETRON [Concomitant]
     Route: 065
  10. PRIMPERAN (FINLAND) [Concomitant]
     Route: 065
  11. EMEND [Concomitant]
     Route: 065
  12. PEGORION [Concomitant]
     Route: 065
  13. OXYNORM [Concomitant]
  14. TARGINIQ [Concomitant]
  15. PACLITAXEL [Concomitant]
     Indication: OVARIAN CANCER
  16. CARBOPLATIN [Concomitant]
     Indication: OVARIAN CANCER
     Route: 065
     Dates: start: 2010

REACTIONS (5)
  - Ovarian cancer [Fatal]
  - Abdominal pain [Unknown]
  - Intestinal obstruction [Unknown]
  - General physical health deterioration [Unknown]
  - Functional gastrointestinal disorder [Unknown]
